FAERS Safety Report 25346692 (Version 1)
Quarter: 2025Q2

REPORT INFORMATION
  Report Type: Report from Study
  Country: JP (occurrence: JP)
  Receive Date: 20250522
  Receipt Date: 20250522
  Transmission Date: 20250716
  Serious: Yes (Other)
  Sender: RECORDATI
  Company Number: JP-ORPHANEU-2025003450

PATIENT
  Age: 0 Year
  Sex: Male
  Weight: 6.85 kg

DRUGS (10)
  1. CARBAGLU [Suspect]
     Active Substance: CARGLUMIC ACID
     Indication: Propionic acidaemia
     Dosage: 300 MG DAILY IN TID
     Dates: start: 20240612, end: 20241216
  2. BUPHENYL [Concomitant]
     Active Substance: SODIUM PHENYLBUTYRATE
     Indication: Product used for unknown indication
     Dosage: 1350 MG, QID
     Route: 048
     Dates: start: 20240611, end: 20240613
  3. BUPHENYL [Concomitant]
     Active Substance: SODIUM PHENYLBUTYRATE
     Dosage: 1800 MG, QID
     Route: 048
     Dates: start: 20240614, end: 20240619
  4. BUPHENYL [Concomitant]
     Active Substance: SODIUM PHENYLBUTYRATE
     Dosage: 900 MG, QID
     Route: 048
     Dates: start: 20240619, end: 20240625
  5. BENZOIC ACID [Concomitant]
     Active Substance: BENZOIC ACID
     Indication: Product used for unknown indication
     Dosage: 15 MILLILITER, QD. INJECTION
     Dates: start: 20240612, end: 20240617
  6. BENZOIC ACID [Concomitant]
     Active Substance: BENZOIC ACID
     Dosage: 5 MILLILITER, QD. INJECTION
     Dates: start: 20240617, end: 20240618
  7. Argi u [Concomitant]
     Indication: Product used for unknown indication
     Dosage: 200 MILLILITER, QD, INJECTION
     Dates: start: 20240611, end: 20240616
  8. LEVOCARNITINE [Concomitant]
     Active Substance: LEVOCARNITINE
     Indication: Product used for unknown indication
     Dosage: 300 MG, TID, INJECTION
     Dates: start: 20240612, end: 20240618
  9. Levocarnitine ff [Concomitant]
     Indication: Product used for unknown indication
     Dosage: 3 MILLILITER, TID
     Route: 048
     Dates: start: 20240618
  10. LACTULOSE [Concomitant]
     Active Substance: LACTULOSE
     Indication: Product used for unknown indication
     Dosage: 6 MILLILITER, TID
     Route: 048
     Dates: start: 20240613

REACTIONS (4)
  - Tracheal stenosis [Recovered/Resolved with Sequelae]
  - Sepsis [Recovered/Resolved]
  - Iron deficiency anaemia [Recovering/Resolving]
  - Hyperammonaemia [Unknown]

NARRATIVE: CASE EVENT DATE: 20240618
